FAERS Safety Report 7481930-3 (Version None)
Quarter: 2011Q2

REPORT INFORMATION
  Report Type: 
  Country: None (occurrence: None)
  Receive Date: 20110516
  Receipt Date: 20110328
  Transmission Date: 20111010
  Serious: Yes (Other)
  Sender: FDA-Public Use
  Company Number: PHHY2011US22824

PATIENT
  Sex: Female

DRUGS (5)
  1. VITAMIN B6 [Concomitant]
     Dosage: UNK
  2. POTASSIUM CHLORIDE [Concomitant]
     Dosage: UNK
  3. FEMARA [Concomitant]
     Dosage: UNK
  4. VITAMIN B-12 [Concomitant]
     Dosage: UNK
  5. EXJADE [Suspect]
     Indication: IRON OVERLOAD
     Dosage: 2500 MG, DAILY
     Route: 048
     Dates: start: 20100412, end: 20110318

REACTIONS (10)
  - BLOOD PRESSURE INCREASED [None]
  - BODY TEMPERATURE INCREASED [None]
  - ORAL PRURITUS [None]
  - FATIGUE [None]
  - RASH [None]
  - PAIN [None]
  - RASH MACULO-PAPULAR [None]
  - PRURITUS GENERALISED [None]
  - COUGH [None]
  - HEART RATE INCREASED [None]
